FAERS Safety Report 17583636 (Version 1)
Quarter: 2020Q1

REPORT INFORMATION
  Report Type: Spontaneous
  Country: HR (occurrence: HR)
  Receive Date: 20200326
  Receipt Date: 20200326
  Transmission Date: 20200409
  Serious: Yes (Other)
  Sender: FDA-Public Use
  Company Number: HR-BAXTER-2020BAX006098

PATIENT
  Age: 41 Year
  Sex: Female

DRUGS (5)
  1. SOLU-MEDROL [Suspect]
     Active Substance: METHYLPREDNISOLONE SODIUM SUCCINATE
     Indication: SWELLING FACE
     Route: 041
     Dates: start: 20200203, end: 20200203
  2. SYNOPEN [Suspect]
     Active Substance: CHLOROPYRAMINE HYDROCHLORIDE
     Indication: SWELLING FACE
     Route: 041
     Dates: start: 20200203, end: 20200203
  3. PROSTIN E2 [Concomitant]
     Active Substance: DINOPROSTONE
     Indication: LABOUR INDUCTION
     Route: 067
     Dates: start: 20200203, end: 20200203
  4. RINGEROVA OTOPINA VIAFLO, OTOPINA ZA INFUZIJU [Suspect]
     Active Substance: CALCIUM CHLORIDE\POTASSIUM CHLORIDE\SODIUM CHLORIDE
     Indication: SWELLING FACE
     Route: 041
     Dates: start: 20200203, end: 20200203
  5. AMPICILIN SANDOZ [Suspect]
     Active Substance: AMPICILLIN SODIUM
     Indication: AMNIORRHOEA
     Route: 041
     Dates: start: 20200203, end: 20200203

REACTIONS (4)
  - Exposure during pregnancy [Recovered/Resolved]
  - Erythema [Recovered/Resolved]
  - Peripheral swelling [Recovered/Resolved]
  - Swelling face [Recovered/Resolved]

NARRATIVE: CASE EVENT DATE: 20200203
